FAERS Safety Report 4343664-3 (Version None)
Quarter: 2004Q2

REPORT INFORMATION
  Report Type: 
  Country: None (occurrence: None)
  Receive Date: 20040419
  Receipt Date: 20040402
  Transmission Date: 20050107
  Serious: Yes (Death, Hospitalization)
  Sender: FDA-Public Use
  Company Number: MEDI-0001618

PATIENT
  Age: 6 Month
  Sex: Male

DRUGS (5)
  1. SYNAGIS [Suspect]
     Indication: ANTIVIRAL PROPHYLAXIS
     Dosage: 1 IN 30 D, INTRAMUSCULAR; 1.05 MG, 1 IN 30 D, INTRAMUSCULAR
     Route: 030
     Dates: start: 20031104, end: 20040106
  2. SYNAGIS [Suspect]
     Indication: ANTIVIRAL PROPHYLAXIS
     Dosage: 1 IN 30 D, INTRAMUSCULAR; 1.05 MG, 1 IN 30 D, INTRAMUSCULAR
     Route: 030
     Dates: start: 20040302, end: 20040302
  3. SYNAGIS [Suspect]
     Indication: ANTIVIRAL PROPHYLAXIS
     Dosage: 1 IN 30 D, INTRAMUSCULAR; 1.05 MG, 1 IN 30 D, INTRAMUSCULAR
     Route: 030
     Dates: start: 20031104
  4. SYNAGIS [Suspect]
  5. ROBINAUL (GLYCOPYRRONIUM BROMIDE) [Concomitant]

REACTIONS (3)
  - APNOEA [None]
  - INCREASED BRONCHIAL SECRETION [None]
  - PNEUMONIA [None]
